FAERS Safety Report 25587155 (Version 1)
Quarter: 2025Q3

REPORT INFORMATION
  Report Type: Spontaneous
  Country: US (occurrence: None)
  Receive Date: 20250721
  Receipt Date: 20250721
  Transmission Date: 20251020
  Serious: Yes (Life-Threatening, Hospitalization, Disabling)
  Sender: FDA-CTU
  Company Number: None

PATIENT
  Age: 87 Year
  Sex: Female
  Weight: 52.62 kg

DRUGS (12)
  1. SINEMET [Suspect]
     Active Substance: CARBIDOPA\LEVODOPA
     Indication: Drug therapy
     Dosage: FREQUENCY : 3 TIMES A DAY;?
     Route: 048
     Dates: start: 20250512, end: 20250711
  2. ACYCLOVIR [Concomitant]
     Active Substance: ACYCLOVIR
  3. TRAVOPROST [Concomitant]
     Active Substance: TRAVOPROST
  4. SIMVASTATIN [Concomitant]
     Active Substance: SIMVASTATIN
  5. CALCIUM [Concomitant]
     Active Substance: CALCIUM
  6. MAGNESIUM [Concomitant]
     Active Substance: MAGNESIUM
  7. BIOTIN [Concomitant]
     Active Substance: BIOTIN
  8. TRAZODONE [Concomitant]
     Active Substance: TRAZODONE HYDROCHLORIDE
  9. ALBUTEROL [Concomitant]
     Active Substance: ALBUTEROL
  10. HYDROXYZINE HYDROCHLORIDE [Concomitant]
     Active Substance: HYDROXYZINE HYDROCHLORIDE
  11. CLINDAMYCIN [Concomitant]
     Active Substance: CLINDAMYCIN
  12. NITROFURANTOIN\NITROFURANTOIN MONOHYDRATE [Concomitant]
     Active Substance: NITROFURANTOIN\NITROFURANTOIN MONOHYDRATE

REACTIONS (3)
  - Eyelid disorder [None]
  - Eye discharge [None]
  - Ocular hyperaemia [None]

NARRATIVE: CASE EVENT DATE: 20250711
